FAERS Safety Report 23366921 (Version 2)
Quarter: 2024Q2

REPORT INFORMATION
  Report Type: Other
  Country: US (occurrence: US)
  Receive Date: 20240104
  Receipt Date: 20240423
  Transmission Date: 20240716
  Serious: Yes (Other)
  Sender: FDA-Public Use
  Company Number: US-NEUROCRINE BIOSCIENCES INC.-2023NBI09396

PATIENT
  Age: 50 Year
  Sex: Male

DRUGS (7)
  1. INGREZZA [Suspect]
     Active Substance: VALBENAZINE
     Indication: Tardive dyskinesia
     Dosage: 40 MILLIGRAM, QD
     Route: 048
     Dates: start: 20231012, end: 20231016
  2. TAMSULOSIN [Concomitant]
     Active Substance: TAMSULOSIN
     Indication: Benign prostatic hyperplasia
     Dosage: 0.8 MILLIGRAM, QD
     Route: 048
     Dates: start: 20231012
  3. TAMSULOSIN [Concomitant]
     Active Substance: TAMSULOSIN
     Dosage: 0.4 MILLIGRAM, QD
     Route: 048
  4. LOXAPINE [Concomitant]
     Active Substance: LOXAPINE
     Indication: Schizophrenia
     Dosage: 10 MILLIGRAM, BID
     Route: 048
     Dates: start: 202308
  5. BENZTROPINE [Concomitant]
     Active Substance: BENZTROPINE
     Indication: Extrapyramidal disorder
     Dosage: 1 MILLIGRAM, TID
     Route: 048
     Dates: start: 202309
  6. BENZTROPINE [Concomitant]
     Active Substance: BENZTROPINE
     Dosage: 1 MILLIGRAM, BID
     Route: 048
  7. VITAMIN D NOS [Concomitant]
     Active Substance: VITAMIN D NOS
     Indication: Vitamin D decreased
     Dosage: 50 MICROGRAM, QD
     Route: 048
     Dates: start: 202310

REACTIONS (3)
  - Suicidal ideation [Recovered/Resolved]
  - Self-injurious ideation [Recovered/Resolved]
  - Depressed mood [Recovered/Resolved]

NARRATIVE: CASE EVENT DATE: 20231016
